FAERS Safety Report 8927734 (Version 1)
Quarter: 2012Q4

REPORT INFORMATION
  Report Type: 
  Country: US (occurrence: US)
  Receive Date: 20121126
  Receipt Date: 20121126
  Transmission Date: 20130627
  Serious: No
  Sender: FDA-Public Use
  Company Number: US-VERTEX PHARMACEUTICAL INC.-2012-024767

PATIENT
  Age: 63 Year
  Sex: Female
  Weight: 63 kg

DRUGS (4)
  1. INCIVEK [Suspect]
     Indication: HEPATITIS C
     Dosage: 750 mg, tid
     Route: 048
     Dates: start: 20121105
  2. RIBAVIRIN [Suspect]
     Indication: HEPATITIS C
     Dosage: 400 mg, qd
     Route: 048
     Dates: start: 201207
  3. RIBAVIRIN [Suspect]
     Dosage: 200 mg, qod
     Route: 048
  4. PEGASYS [Suspect]
     Indication: HEPATITIS C
     Dosage: 180 ?g, qw
     Route: 058
     Dates: start: 201207

REACTIONS (8)
  - Off label use [Unknown]
  - Dizziness [Recovered/Resolved]
  - Headache [Not Recovered/Not Resolved]
  - Pyrexia [Not Recovered/Not Resolved]
  - Chills [Not Recovered/Not Resolved]
  - Pain [Recovered/Resolved]
  - Malaise [Recovered/Resolved]
  - Asthenia [Recovered/Resolved]
